FAERS Safety Report 19156533 (Version 4)
Quarter: 2023Q4

REPORT INFORMATION
  Report Type: Spontaneous
  Country: US (occurrence: US)
  Receive Date: 20210419
  Receipt Date: 20231022
  Transmission Date: 20240110
  Serious: Yes (Hospitalization)
  Sender: FDA-Public Use
  Company Number: US-JNJFOC-20210425365

PATIENT
  Age: 5 Decade
  Sex: Female

DRUGS (3)
  1. REMICADE [Suspect]
     Active Substance: INFLIXIMAB
     Indication: Psoriasis
     Route: 041
  2. REMICADE [Suspect]
     Active Substance: INFLIXIMAB
     Indication: Psoriatic arthropathy
  3. REMICADE [Suspect]
     Active Substance: INFLIXIMAB
     Indication: Hidradenitis

REACTIONS (4)
  - Pneumonia influenzal [Unknown]
  - Malaise [Unknown]
  - Skin laceration [Unknown]
  - Off label use [Unknown]

NARRATIVE: CASE EVENT DATE: 20130101
